FAERS Safety Report 5320476-5 (Version None)
Quarter: 2007Q2

REPORT INFORMATION
  Report Type: 
  Country: None (occurrence: None)
  Receive Date: 20070509
  Receipt Date: 20070509
  Transmission Date: 20071010
  Serious: Yes (Life-Threatening, Hospitalization)
  Sender: FDA-Public Use
  Company Number: PHBS2007JP06889

PATIENT
  Age: 75 Year
  Sex: Male

DRUGS (2)
  1. NEORAL [Suspect]
     Indication: NEPHROTIC SYNDROME
     Route: 048
  2. STEROIDS NOS [Suspect]
     Indication: NEPHROTIC SYNDROME
     Route: 048

REACTIONS (7)
  - ERYTHEMA [None]
  - HEPATIC FUNCTION ABNORMAL [None]
  - PAIN [None]
  - RASH [None]
  - RASH PUSTULAR [None]
  - SCEDOSPORIUM INFECTION [None]
  - SKIN EROSION [None]
